FAERS Safety Report 9406808 (Version 2)
Quarter: 2013Q3

REPORT INFORMATION
  Report Type: Spontaneous
  Country: JP (occurrence: JP)
  Receive Date: 20130718
  Receipt Date: 20130801
  Transmission Date: 20140515
  Serious: Yes (Hospitalization)
  Sender: FDA-Public Use
  Company Number: PHHY2013JP075582

PATIENT
  Sex: 0

DRUGS (2)
  1. SANDOSTATIN [Suspect]
     Indication: GASTROINTESTINAL DISORDER
     Dosage: 200 UG, DAILY
     Route: 058
  2. SANDOSTATIN [Suspect]
     Dosage: 300 UG, DAILY
     Route: 058

REACTIONS (1)
  - Hepatic function abnormal [Unknown]
